FAERS Safety Report 5546917-6 (Version None)
Quarter: 2007Q4

REPORT INFORMATION
  Report Type: 
  Country: None (occurrence: None)
  Receive Date: 20071211
  Receipt Date: 20071129
  Transmission Date: 20080405
  Serious: Yes (Life-Threatening)
  Sender: FDA-Public Use
  Company Number: JP-PFIZER INC-2007083076

PATIENT
  Sex: Female
  Weight: 12 kg

DRUGS (4)
  1. ZITHROMAX [Suspect]
     Indication: OTITIS MEDIA
     Route: 048
     Dates: start: 20060929, end: 20061001
  2. ZITHROMAX [Suspect]
     Route: 048
     Dates: start: 20071002, end: 20071003
  3. MUCODYNE [Concomitant]
     Dosage: DAILY DOSE:1.08GRAM
     Route: 048
     Dates: start: 20071002, end: 20071003
  4. PERIACTIN [Concomitant]
     Dosage: DAILY DOSE:.36GRAM
     Route: 048
     Dates: start: 20071002, end: 20071003

REACTIONS (1)
  - AGITATION [None]
